FAERS Safety Report 4294327-4 (Version None)
Quarter: 2004Q1

REPORT INFORMATION
  Report Type: 
  Country: None (occurrence: None)
  Receive Date: 20040211
  Receipt Date: 20030807
  Transmission Date: 20041129
  Serious: No
  Sender: FDA-Public Use
  Company Number: US-GLAXOSMITHKLINE-A0420816A

PATIENT
  Sex: Male

DRUGS (3)
  1. LAMICTAL [Suspect]
     Route: 048
  2. WELLBUTRIN [Suspect]
     Indication: DEPRESSION
     Dosage: 1TAB TWICE PER DAY
     Route: 048
  3. LEXAPRO [Concomitant]

REACTIONS (1)
  - APHTHOUS STOMATITIS [None]
